FAERS Safety Report 5504723-2 (Version None)
Quarter: 2007Q4

REPORT INFORMATION
  Report Type: 
  Country: None (occurrence: None)
  Receive Date: 20071031
  Receipt Date: 20071023
  Transmission Date: 20080405
  Serious: Yes (Life-Threatening, Disabling)
  Sender: FDA-Public Use
  Company Number: 2007S1000153

PATIENT
  Age: 2 Day
  Sex: Male
  Weight: 0.71 kg

DRUGS (8)
  1. NITRIC OXIDE [Suspect]
     Indication: LUNG DISORDER
     Dosage: 5 PPM; CONT; INH
     Route: 055
     Dates: start: 20070804, end: 20070825
  2. MECLOCELIN [Concomitant]
  3. GENTAMYCIN-MP [Concomitant]
  4. ERYTHROMYCIN [Concomitant]
  5. INDOMETHACIN [Concomitant]
  6. DOPAMINE HCL [Concomitant]
  7. ADRENALINE [Concomitant]
  8. INSULIN [Concomitant]

REACTIONS (2)
  - INTRAVENTRICULAR HAEMORRHAGE [None]
  - PULMONARY HAEMORRHAGE [None]
